FAERS Safety Report 15918757 (Version 2)
Quarter: 2019Q1

REPORT INFORMATION
  Report Type: Spontaneous
  Country: FI (occurrence: FI)
  Receive Date: 20190205
  Receipt Date: 20190314
  Transmission Date: 20190417
  Serious: Yes (Other)
  Sender: FDA-Public Use
  Company Number: FI-PFIZER INC-2018513898

PATIENT
  Age: 58 Year
  Sex: Female

DRUGS (9)
  1. SIRDALUD [Concomitant]
     Active Substance: TIZANIDINE
     Dosage: 24 MG, 1X/DAY
     Route: 065
     Dates: start: 20161220
  2. OCREVUS [Suspect]
     Active Substance: OCRELIZUMAB
     Dosage: 300 MG, UNK
     Route: 041
     Dates: start: 20181207
  3. ATARAX [Concomitant]
     Active Substance: HYDROXYZINE HYDROCHLORIDE
     Indication: PREMEDICATION
     Dosage: 25 MG, UNK
     Route: 048
     Dates: start: 20181122
  4. SOLU-MEDROL [Suspect]
     Active Substance: METHYLPREDNISOLONE SODIUM SUCCINATE
     Indication: PREMEDICATION
     Dosage: 100 MG, UNK
     Route: 042
     Dates: start: 20181122
  5. CORTISONE [Suspect]
     Active Substance: CORTISONE\HYDROCORTISONE
     Dosage: UNK
  6. OCREVUS [Suspect]
     Active Substance: OCRELIZUMAB
     Indication: PRIMARY PROGRESSIVE MULTIPLE SCLEROSIS
     Dosage: 300 MG, UNK
     Route: 041
     Dates: start: 20181122
  7. VESICARE [Concomitant]
     Active Substance: SOLIFENACIN SUCCINATE
     Dosage: 5 MG, 1X/DAY
     Route: 065
     Dates: start: 20171117
  8. BAKLOFEN [Concomitant]
     Active Substance: BACLOFEN
     Dosage: 5-10 MG 3-4 TIMES DAILY
     Route: 065
     Dates: start: 20180612
  9. PANADOL FORTE [Concomitant]
     Dosage: 1 G, 2-3 TIMES DAILY AS NEEDED
     Route: 065
     Dates: start: 20180612

REACTIONS (3)
  - Fatigue [Unknown]
  - Herpes zoster [Recovered/Resolved]
  - Heart rate increased [Recovered/Resolved]

NARRATIVE: CASE EVENT DATE: 20181122
